FAERS Safety Report 6220146-5 (Version None)
Quarter: 2009Q2

REPORT INFORMATION
  Report Type: 
  Country: None (occurrence: None)
  Receive Date: 20090609
  Receipt Date: 20090528
  Transmission Date: 20091009
  Serious: Yes (Hospitalization)
  Sender: FDA-Public Use
  Company Number: DE-SANOFI-SYNTHELABO-A04200900743

PATIENT
  Age: 94 Year
  Sex: Female

DRUGS (13)
  1. TOREM /GFR/ [Concomitant]
     Indication: DIABETIC NEUROPATHY
     Route: 048
  2. OMEPRAZOLE [Concomitant]
     Indication: PROPHYLAXIS AGAINST GASTROINTESTINAL ULCER
     Route: 048
  3. MELNEURIN [Suspect]
     Indication: DEMENTIA OF THE ALZHEIMER'S TYPE, WITH DEPRESSED MOOD
     Route: 048
     Dates: start: 20090513, end: 20090515
  4. MELNEURIN [Interacting]
     Route: 048
     Dates: start: 20090516
  5. LACTULOSE [Concomitant]
     Indication: CONSTIPATION
     Route: 048
  6. FENTANYL HEXAL [Interacting]
     Indication: PAIN
     Dosage: 12.5 MCG/HOUR FOR 3 DAYS
     Route: 062
     Dates: start: 20090201, end: 20090512
  7. FENTANYL HEXAL [Interacting]
     Dosage: 50 MCG/HOUR FOR 3 DAYS
     Route: 062
     Dates: start: 20090513, end: 20090516
  8. FENTANYL HEXAL [Interacting]
     Dosage: 25 MCG/HOUR FOR 3 DAYS
     Route: 062
     Dates: start: 20090515
  9. INSULIN PROTAPHAN HUMAN [Concomitant]
     Indication: TYPE 2 DIABETES MELLITUS
     Route: 058
     Dates: start: 19950101
  10. ZOLPIDEM TARTRATE [Interacting]
     Indication: SLEEP DISORDER
     Route: 048
  11. INSULIN ACTRAPID [Concomitant]
     Indication: TYPE 2 DIABETES MELLITUS
     Dosage: 30-12-10 IU DAILY
     Route: 058
     Dates: start: 19950101
  12. GABAPENTIN [Interacting]
     Indication: PARTIAL SEIZURES
     Route: 048
     Dates: start: 20061001
  13. CITALOPRAM HYDROBROMIDE [Concomitant]
     Indication: DEPRESSION
     Route: 048
     Dates: start: 20090101

REACTIONS (7)
  - COMMUNICATION DISORDER [None]
  - COUGH [None]
  - DEPRESSED LEVEL OF CONSCIOUSNESS [None]
  - DRUG INTERACTION [None]
  - DYSPNOEA [None]
  - FATIGUE [None]
  - WHEEZING [None]
